FAERS Safety Report 8241615-2 (Version None)
Quarter: 2012Q1

REPORT INFORMATION
  Report Type: 
  Country: None (occurrence: None)
  Receive Date: 20120328
  Receipt Date: 20120313
  Transmission Date: 20120608
  Serious: Yes (Other)
  Sender: FDA-Public Use
  Company Number: ES-WATSON-2012-03204

PATIENT
  Age: 2 Year
  Sex: Female

DRUGS (1)
  1. VALPROATE SODIUM [Suspect]
     Indication: TEMPORAL LOBE EPILEPSY
     Dosage: UNK
     Route: 065

REACTIONS (5)
  - GAZE PALSY [None]
  - MOTOR DYSFUNCTION [None]
  - CEREBELLAR SYNDROME [None]
  - NYSTAGMUS [None]
  - POSTURE ABNORMAL [None]
